FAERS Safety Report 12517535 (Version 1)
Quarter: 2016Q2

REPORT INFORMATION
  Report Type: Spontaneous
  Country: BR (occurrence: BR)
  Receive Date: 20160630
  Receipt Date: 20160630
  Transmission Date: 20160815
  Serious: Yes (Death, Other)
  Sender: FDA-Public Use
  Company Number: BR-SA-2016SA120451

PATIENT
  Age: 55 Year
  Sex: Male

DRUGS (1)
  1. FABRAZYME [Suspect]
     Active Substance: AGALSIDASE BETA
     Dosage: DOSE: 2 VIALS
     Route: 042

REACTIONS (2)
  - End stage renal disease [Unknown]
  - Death [Fatal]

NARRATIVE: CASE EVENT DATE: 20160625
